FAERS Safety Report 5846077-8 (Version None)
Quarter: 2008Q3

REPORT INFORMATION
  Report Type: 
  Country: None (occurrence: None)
  Receive Date: 20080813
  Receipt Date: 20080805
  Transmission Date: 20090109
  Serious: Yes (Death)
  Sender: FDA-Public Use
  Company Number: TAP2008Q00760

PATIENT
  Age: 7 Year
  Sex: Male
  Weight: 25.4014 kg

DRUGS (4)
  1. PREVACID [Suspect]
     Indication: GASTROOESOPHAGEAL REFLUX DISEASE
     Dosage: 30 MG (30 MG, 1 IN 1 D), ORAL
     Route: 048
  2. SYMBICORT [Suspect]
     Indication: ASTHMA
     Dosage: INHALATION
     Route: 055
  3. SINGULAIR [Suspect]
     Indication: ASTHMA
  4. NASONEX [Suspect]
     Indication: ASTHMA

REACTIONS (2)
  - ANOXIA [None]
  - ASTHMA [None]
